FAERS Safety Report 6825273-7 (Version None)
Quarter: 2010Q3

REPORT INFORMATION
  Report Type: 
  Country: None (occurrence: None)
  Receive Date: 20100708
  Receipt Date: 20061213
  Transmission Date: 20110219
  Serious: No
  Sender: FDA-Public Use
  Company Number: US-PFIZER INC-2006154234

PATIENT
  Sex: Female
  Weight: 54.88 kg

DRUGS (8)
  1. CHANTIX [Suspect]
     Indication: NICOTINE DEPENDENCE
     Dates: start: 20061201
  2. WELLBUTRIN [Concomitant]
  3. OTHER HYPNOTICS AND SEDATIVES [Concomitant]
  4. NORCO [Concomitant]
     Indication: FIBROMYALGIA
  5. VICODIN [Concomitant]
     Indication: FIBROMYALGIA
  6. VALIUM [Concomitant]
     Indication: FIBROMYALGIA
  7. ULTRACET [Concomitant]
     Indication: FIBROMYALGIA
  8. SUMATRIPTAN SUCCINATE (IMITREX) [Concomitant]
     Indication: MIGRAINE

REACTIONS (3)
  - DECREASED APPETITE [None]
  - NAUSEA [None]
  - WEIGHT DECREASED [None]
